FAERS Safety Report 14367574 (Version 1)
Quarter: 2018Q1

REPORT INFORMATION
  Report Type: Other
  Country: CZ (occurrence: CZ)
  Receive Date: 20180109
  Receipt Date: 20180109
  Transmission Date: 20180509
  Serious: Yes (Other)
  Sender: FDA-Public Use
  Company Number: CZ-CELLTRION INC.-2017CZ016407

PATIENT

DRUGS (2)
  1. REMSIMA [Suspect]
     Active Substance: INFLIXIMAB
     Indication: PSORIATIC ARTHROPATHY
     Dosage: UNK
     Route: 017
     Dates: start: 20140506, end: 20140506
  2. REMSIMA [Suspect]
     Active Substance: INFLIXIMAB
     Dosage: 100 MG/KG, UNK
     Route: 017
     Dates: start: 20171121, end: 20171121

REACTIONS (3)
  - Therapy cessation [Recovered/Resolved]
  - Incorrect route of drug administration [Unknown]
  - Antibiotic prophylaxis [Recovered/Resolved]

NARRATIVE: CASE EVENT DATE: 20140506
